FAERS Safety Report 17283208 (Version 3)
Quarter: 2020Q1

REPORT INFORMATION
  Report Type: Spontaneous
  Country: US (occurrence: US)
  Receive Date: 20200117
  Receipt Date: 20200320
  Transmission Date: 20200409
  Serious: Yes (Other)
  Sender: FDA-Public Use
  Company Number: US-PFIZER INC-2020019096

PATIENT
  Age: 80 Year
  Sex: Female
  Weight: 61.69 kg

DRUGS (4)
  1. TIMOLOL MALEATE. [Concomitant]
     Active Substance: TIMOLOL MALEATE
     Dosage: UNK
  2. BRIMONIDINE [Concomitant]
     Active Substance: BRIMONIDINE TARTRATE
     Dosage: UNK
  3. LATANOPROST. [Suspect]
     Active Substance: LATANOPROST
     Dosage: UNK
  4. XALATAN [Concomitant]
     Active Substance: LATANOPROST
     Dosage: UNK

REACTIONS (3)
  - Drug hypersensitivity [Unknown]
  - Glaucoma [Unknown]
  - Ocular discomfort [Recovered/Resolved]
